FAERS Safety Report 9758902 (Version 1)
Quarter: 2013Q4

REPORT INFORMATION
  Report Type: Spontaneous
  Country: US (occurrence: None)
  Receive Date: 20131213
  Receipt Date: 20131213
  Transmission Date: 20140711
  Serious: Yes (Other)
  Sender: FDA-Public Use
  Company Number: None

PATIENT
  Age: 57 Year
  Sex: Female
  Weight: 133.81 kg

DRUGS (16)
  1. INVOKANA [Suspect]
     Indication: DIABETES MELLITUS
     Route: 062
     Dates: start: 20131125, end: 20131212
  2. FLUTICASONE [Concomitant]
  3. JANUMET XR [Concomitant]
  4. SYMBICORT [Concomitant]
  5. VENTOLIN HFA [Concomitant]
  6. JANUVIA [Concomitant]
  7. LOSARTAN [Concomitant]
  8. PRAVASTATIN [Concomitant]
  9. LEVOTHYROXINE [Concomitant]
  10. METFORMIN [Concomitant]
  11. TRIAMTERENE/HCTZ [Concomitant]
  12. CITALOPRAM [Concomitant]
  13. FISH OIL [Concomitant]
  14. CPAP MACHINE [Concomitant]
  15. ASA [Concomitant]
  16. TYLENOL EXTRA STRENGTH [Concomitant]

REACTIONS (1)
  - Rash [None]
